FAERS Safety Report 21609084 (Version 1)
Quarter: 2022Q4

REPORT INFORMATION
  Report Type: Spontaneous
  Country: US (occurrence: US)
  Receive Date: 20221117
  Receipt Date: 20221117
  Transmission Date: 20230112
  Serious: No
  Sender: FDA-Public Use
  Company Number: US-PFIZER INC-PV202200104773

PATIENT
  Age: 63 Year
  Sex: Male

DRUGS (2)
  1. METHOTREXATE SODIUM [Suspect]
     Active Substance: METHOTREXATE SODIUM
     Dosage: TAKE 8 PILLS THURSDAY
  2. FOLIC ACID [Concomitant]
     Active Substance: FOLIC ACID
     Dosage: THE OTHER 6 DAYS

REACTIONS (6)
  - Eczema [Unknown]
  - Insomnia [Unknown]
  - Nervousness [Unknown]
  - Pruritus [Unknown]
  - Wound secretion [Unknown]
  - Swelling [Unknown]
